FAERS Safety Report 21211470 (Version 1)
Quarter: 2022Q3

REPORT INFORMATION
  Report Type: Spontaneous
  Country: US (occurrence: None)
  Receive Date: 20220815
  Receipt Date: 20220815
  Transmission Date: 20221027
  Serious: No
  Sender: FDA-Public Use
  Company Number: 2022A286709

PATIENT

DRUGS (9)
  1. SEROQUEL [Suspect]
     Active Substance: QUETIAPINE FUMARATE
     Indication: Schizophrenia
     Route: 048
  2. VRAYLAR [Concomitant]
     Active Substance: CARIPRAZINE
  3. LATUDA [Concomitant]
     Active Substance: LURASIDONE HYDROCHLORIDE
  4. RISPERDAL [Concomitant]
     Active Substance: RISPERIDONE
  5. GEODON [Concomitant]
     Active Substance: ZIPRASIDONE HYDROCHLORIDE\ZIPRASIDONE MESYLATE
  6. ZYPREXA [Concomitant]
     Active Substance: OLANZAPINE
  7. HALDOL [Concomitant]
     Active Substance: HALOPERIDOL
  8. DEPAKOTE [Concomitant]
     Active Substance: DIVALPROEX SODIUM
  9. LAMICTAL [Concomitant]
     Active Substance: LAMOTRIGINE

REACTIONS (5)
  - Nausea [Unknown]
  - Insomnia [Unknown]
  - Depression [Unknown]
  - Anxiety [Unknown]
  - Psychotic disorder [Unknown]
